FAERS Safety Report 8925118 (Version 2)
Quarter: 2012Q4

REPORT INFORMATION
  Report Type: 
  Country: US (occurrence: US)
  Receive Date: 20121126
  Receipt Date: 20121210
  Transmission Date: 20130627
  Serious: Yes (Death, Other)
  Sender: FDA-Public Use
  Company Number: US-ASTELLAS-2012US011338

PATIENT
  Age: 57 Year
  Sex: Male

DRUGS (21)
  1. PROGRAF [Suspect]
     Indication: RENAL TRANSPLANT
     Dosage: 3 mg, bid
     Route: 048
     Dates: start: 20100202, end: 20121030
  2. TAMSULOSIN [Concomitant]
     Indication: PRODUCT USED FOR UNKNOWN INDICATION
     Dosage: 0.4 mg, UID/QD
     Route: 065
     Dates: start: 20110722
  3. MINOXIDIL [Concomitant]
     Indication: PRODUCT USED FOR UNKNOWN INDICATION
     Dosage: 10 mg in the morning, 5 mg in the evening
     Route: 048
     Dates: start: 20120926
  4. ANDROGEL [Concomitant]
     Indication: PRODUCT USED FOR UNKNOWN INDICATION
     Dosage: 3 DF, UID/QD
     Route: 062
  5. SODIUM BICARBONATE [Concomitant]
     Indication: PRODUCT USED FOR UNKNOWN INDICATION
     Dosage: 650 mg, bid
     Route: 048
     Dates: start: 20120809
  6. BETAINE HYDROCHLORIDE [Concomitant]
     Indication: PRODUCT USED FOR UNKNOWN INDICATION
     Dosage: 300 mg, UID/QD
     Route: 065
     Dates: start: 20120119
  7. PROCRIT                            /00909301/ [Concomitant]
     Indication: PRODUCT USED FOR UNKNOWN INDICATION
     Dosage: 10000 U every 2 weeks for 2 days
     Route: 065
     Dates: start: 20110329
  8. INSULIN [Concomitant]
     Indication: PRODUCT USED FOR UNKNOWN INDICATION
     Dosage: Per sliding scale AC and HS regimen
     Route: 065
     Dates: start: 20110427
  9. FOLIC ACID [Concomitant]
     Indication: PRODUCT USED FOR UNKNOWN INDICATION
     Dosage: 1 mg, UID/QD
     Route: 065
     Dates: start: 20101112
  10. FISH OIL [Concomitant]
     Indication: PRODUCT USED FOR UNKNOWN INDICATION
     Dosage: 1000 mg, UID/QD
     Route: 065
     Dates: start: 20100611
  11. ASPIRIN (E.C.) [Concomitant]
     Indication: PRODUCT USED FOR UNKNOWN INDICATION
     Dosage: 81 mg, UID/QD
     Route: 065
     Dates: start: 20091021
  12. NORVASC [Concomitant]
     Indication: PRODUCT USED FOR UNKNOWN INDICATION
     Dosage: 10 mg, UID/QD
     Route: 065
     Dates: start: 20120206
  13. FUROSEMIDE [Concomitant]
     Indication: PRODUCT USED FOR UNKNOWN INDICATION
     Dosage: 40 mg, UID/QD
     Route: 065
     Dates: start: 20110722
  14. PREDNISONE [Concomitant]
     Indication: PRODUCT USED FOR UNKNOWN INDICATION
     Dosage: 7.5 mg, UID/QD
     Route: 065
     Dates: start: 20110722
  15. PEPCID                             /00706001/ [Concomitant]
     Indication: PRODUCT USED FOR UNKNOWN INDICATION
     Dosage: 20 mg, prn
     Route: 065
     Dates: start: 20100304
  16. HYDROCODONE W/APAP                 /00607101/ [Concomitant]
     Indication: PAIN
     Dosage: 1 DF, prn
     Route: 065
     Dates: start: 20110225
  17. FLONASE [Concomitant]
     Indication: PRODUCT USED FOR UNKNOWN INDICATION
     Dosage: 1 DF, prn
     Route: 065
     Dates: start: 20101029
  18. PHENERGAN                          /00033001/ [Concomitant]
     Indication: NAUSEA
     Dosage: 25 mg, prn
     Route: 065
     Dates: start: 20091105
  19. AMBIEN [Concomitant]
     Indication: INSOMNIA
     Dosage: 5 mg, prn
     Route: 065
     Dates: start: 20091019
  20. ZOLPIDEM TARTRATE [Concomitant]
     Indication: PRODUCT USED FOR UNKNOWN INDICATION
     Dosage: 10 mg, prn
     Route: 065
     Dates: start: 20120509
  21. FLEXERIL                           /00428402/ [Concomitant]
     Indication: BACK PAIN
     Dosage: 10 mg, prn
     Route: 048
     Dates: start: 20100713

REACTIONS (2)
  - Myocardial infarction [Fatal]
  - Stent placement [Unknown]
